FAERS Safety Report 8770588 (Version 1)
Quarter: 2012Q4

REPORT INFORMATION
  Report Type: 
  Country: US (occurrence: US)
  Receive Date: 20120906
  Receipt Date: 20120906
  Transmission Date: 20130627
  Serious: Yes (Hospitalization)
  Sender: FDA-Public Use
  Company Number: US-BAYER-2012-091643

PATIENT
  Age: 40 Year
  Sex: Female

DRUGS (10)
  1. YASMIN [Suspect]
  2. BUSPAR [Concomitant]
  3. LORATADINE [Concomitant]
     Dosage: UNK UNK, PRN
  4. MOTRIN [Concomitant]
  5. ABILIFY [Concomitant]
     Dosage: 10 mg, UNK
     Route: 048
  6. IBUPROFEN [Concomitant]
     Dosage: 800 mg, UNK
     Route: 048
  7. HYDROXYZINE PAMOATE [Concomitant]
     Indication: INSOMNIA
     Dosage: 25 mg, UNK
     Route: 048
  8. SEROQUEL [Concomitant]
     Dosage: 25 mg, UNK
     Route: 048
  9. BUPROPION SR [Concomitant]
     Dosage: 150 mg, UNK
     Route: 048
  10. AMOXICILLIN [Concomitant]

REACTIONS (1)
  - Deep vein thrombosis [Recovered/Resolved]
